FAERS Safety Report 6967958-8 (Version None)
Quarter: 2010Q3

REPORT INFORMATION
  Report Type: 
  Country: None (occurrence: None)
  Receive Date: 20100907
  Receipt Date: 20100825
  Transmission Date: 20110219
  Serious: Yes (Hospitalization)
  Sender: FDA-Public Use
  Company Number: A0781683A

PATIENT
  Age: 66 Year
  Sex: Male

DRUGS (1)
  1. AVANDIA [Suspect]
     Indication: DIABETES MELLITUS
     Dosage: 8MG SEE DOSAGE TEXT
     Route: 048
     Dates: start: 20020110, end: 20060315

REACTIONS (3)
  - CARDIAC FAILURE CONGESTIVE [None]
  - DYSPNOEA [None]
  - PAIN [None]
